FAERS Safety Report 18744059 (Version 1)
Quarter: 2021Q1

REPORT INFORMATION
  Report Type: Spontaneous
  Country: US (occurrence: US)
  Receive Date: 20210115
  Receipt Date: 20210115
  Transmission Date: 20210419
  Serious: No
  Sender: FDA-Public Use
  Company Number: US-SA-2021SA010621

PATIENT

DRUGS (1)
  1. CABLIVI [Suspect]
     Active Substance: CAPLACIZUMAB-YHDP
     Dosage: DRUG STRUCTURE DOSAGE :   UNKNOWN  DRUG INTERVAL DOSAGE :   UNKNOWN
     Route: 065
     Dates: start: 20210114

REACTIONS (1)
  - Off label use [Unknown]

NARRATIVE: CASE EVENT DATE: 20210114
